FAERS Safety Report 14310418 (Version 1)
Quarter: 2017Q4

REPORT INFORMATION
  Report Type: Spontaneous
  Country: US (occurrence: US)
  Receive Date: 20171220
  Receipt Date: 20171220
  Transmission Date: 20180321
  Serious: Yes (Other)
  Sender: FDA-Public Use
  Company Number: None

PATIENT
  Age: 53 Year
  Sex: Female

DRUGS (3)
  1. BENDRYL/HUMIRA/IBUPROFEN [Concomitant]
  2. HUMIRA [Suspect]
     Active Substance: ADALIMUMAB
     Indication: RHEUMATOID ARTHRITIS
  3. VITAMIN D [Concomitant]
     Active Substance: CHOLECALCIFEROL

REACTIONS (6)
  - Pruritus [None]
  - Skin exfoliation [None]
  - Urticaria [None]
  - Burning sensation [None]
  - Skin disorder [None]
  - Eyelid oedema [None]

NARRATIVE: CASE EVENT DATE: 20170817
